FAERS Safety Report 4340807-2 (Version None)
Quarter: 2004Q2

REPORT INFORMATION
  Report Type: 
  Country: None (occurrence: None)
  Receive Date: 20040416
  Receipt Date: 19951115
  Transmission Date: 20050107
  Serious: Yes (Death, Life-Threatening, Hospitalization)
  Sender: FDA-Public Use
  Company Number: WAES 95120908

PATIENT
  Age: 15 Day
  Sex: Female

DRUGS (14)
  1. INDOCIN I.V. [Suspect]
     Indication: PATENT DUCTUS ARTERIOSUS
     Dosage: 186 MICROGM/DAILY; IV (1 DOSE) (SEE IMAGE)
     Route: 042
     Dates: start: 19950325, end: 19950325
  2. INDOCIN I.V. [Suspect]
     Indication: PATENT DUCTUS ARTERIOSUS
     Dosage: 186 MICROGM/DAILY; IV (1 DOSE) (SEE IMAGE)
     Route: 042
     Dates: start: 19950326, end: 19950326
  3. INDOCIN I.V. [Suspect]
     Indication: PATENT DUCTUS ARTERIOSUS
     Dosage: 186 MICROGM/DAILY; IV (1 DOSE) (SEE IMAGE)
     Route: 042
     Dates: start: 19950328, end: 19950328
  4. AMIKACIN SULFATE [Concomitant]
  5. AMPICILLIN [Concomitant]
  6. ANESTHESIA, GENERAL [Concomitant]
  7. BLOOD TRANSFUSIONS [Concomitant]
  8. CEPHALOTHIN SODIUM [Concomitant]
  9. CIMETIDINE HCL [Concomitant]
  10. FLUCONAZOLE [Concomitant]
  11. FUROSEMIDE [Concomitant]
  12. GENTAMICINS04 [Concomitant]
  13. MEFENAMIC ACID [Concomitant]
  14. PIPERACILLIN SODIUM [Concomitant]

REACTIONS (3)
  - PNEUMONIA [None]
  - RENAL DISORDER [None]
  - RENAL TUBULAR NECROSIS [None]
